FAERS Safety Report 4338527-3 (Version None)
Quarter: 2004Q2

REPORT INFORMATION
  Report Type: 
  Country: None (occurrence: None)
  Receive Date: 20040409
  Receipt Date: 20040331
  Transmission Date: 20050107
  Serious: Yes (Hospitalization)
  Sender: FDA-Public Use
  Company Number: FEI2004-0228

PATIENT
  Age: 22 Year
  Sex: Female
  Weight: 72.1219 kg

DRUGS (4)
  1. PARAGARD T380A (INTRAUTERINE CONTRACEPTIVES) (UTERINE) [Suspect]
     Indication: CONTRACEPTION
     Dosage: INTRA-UTERINE
     Route: 015
     Dates: start: 20020506, end: 20020710
  2. ZOLOFT [Concomitant]
  3. PRENATAL VITAMINS (PRENATAL) (PILL) [Concomitant]
  4. LOVENOX [Concomitant]

REACTIONS (5)
  - ANAEMIA [None]
  - BETA HAEMOLYTIC STREPTOCOCCAL INFECTION [None]
  - CERVICAL DYSPLASIA [None]
  - DEEP VEIN THROMBOSIS [None]
  - PREGNANCY WITH CONTRACEPTIVE DEVICE [None]
